FAERS Safety Report 9783188 (Version 1)
Quarter: 2013Q4

REPORT INFORMATION
  Report Type: Spontaneous
  Country: CH (occurrence: CH)
  Receive Date: 20131226
  Receipt Date: 20131226
  Transmission Date: 20140711
  Serious: Yes (Hospitalization)
  Sender: FDA-Public Use
  Company Number: PHHY2013CH149095

PATIENT
  Age: 60 Year
  Sex: Female

DRUGS (12)
  1. VOLTAREN RETARD [Suspect]
     Indication: BACK PAIN
     Dosage: 75 MG, BID
     Route: 048
     Dates: start: 20131025, end: 20131027
  2. BRUFEN [Suspect]
     Indication: SPINAL PAIN
     Dosage: 400 MG, QID
     Route: 048
     Dates: start: 20131023, end: 20131025
  3. BENERVA [Concomitant]
  4. BECOZYM-F [Concomitant]
  5. DAFALGAN [Concomitant]
  6. MST CONTINUS [Concomitant]
     Dosage: 10 MG, DAILY
  7. TEMESTA [Concomitant]
  8. ATORVASTATIN [Concomitant]
  9. PANTOZOL [Concomitant]
  10. NICOTINEL-TTS [Concomitant]
  11. ZOFRAN [Concomitant]
  12. FRAGMIN [Concomitant]

REACTIONS (2)
  - Renal tubular necrosis [Unknown]
  - Renal failure chronic [Recovered/Resolved]
